FAERS Safety Report 8817746 (Version 3)
Quarter: 2013Q3

REPORT INFORMATION
  Report Type: Report from Study
  Country: JP (occurrence: JP)
  Receive Date: 20121001
  Receipt Date: 20130808
  Transmission Date: 20140515
  Serious: Yes (Hospitalization)
  Sender: FDA-Public Use
  Company Number: PHHY2012JP084926

PATIENT
  Age: 65 Year
  Sex: Female

DRUGS (18)
  1. FTY 720 [Suspect]
     Indication: MULTIPLE SCLEROSIS
     Dosage: 0.5 MG, QD
     Route: 048
     Dates: start: 20120221, end: 20120406
  2. FTY 720 [Suspect]
     Dosage: 0.5 MG, QD
     Route: 048
     Dates: start: 20120608
  3. BONOTEO [Suspect]
     Indication: OSTEOPOROSIS
     Dosage: 50 MG, UNK
     Route: 048
     Dates: end: 20120516
  4. RIVOTRIL [Suspect]
     Indication: PAIN IN EXTREMITY
     Dosage: 0.5 MG, UNK
     Route: 048
     Dates: end: 20120513
  5. ELCITONIN [Concomitant]
     Route: 051
     Dates: start: 20120210, end: 20120302
  6. LOXONIN [Concomitant]
     Dosage: 100 MG, UNK
     Route: 061
     Dates: start: 20120229
  7. MOHRUS [Concomitant]
     Route: 061
     Dates: start: 20120229, end: 20130328
  8. INTEBAN [Concomitant]
     Dosage: 1 G, UNK
     Route: 061
     Dates: start: 20120229, end: 20121114
  9. HIRUDOID [Concomitant]
     Route: 061
     Dates: start: 20120229, end: 20130328
  10. ALFAROL [Concomitant]
     Dosage: 1 UG, UNK
     Route: 048
     Dates: start: 20120906
  11. GLAKAY [Concomitant]
     Dosage: 45 MG, UNK
     Route: 048
     Dates: start: 20120906
  12. LIORESAL [Concomitant]
     Dosage: 30 MG, UNK
     Route: 048
  13. LOXONIN [Concomitant]
     Dosage: 60 MG, PRN
     Route: 048
  14. EBRANTIL [Concomitant]
     Dosage: 60 MG, UNK
     Route: 048
  15. GASTER D [Concomitant]
     Dosage: 20 MG, PRN
     Route: 048
     Dates: end: 20130110
  16. MAGLAX [Concomitant]
     Dosage: 1980 MG, UNK
     Route: 048
  17. MOBIC [Concomitant]
     Dosage: 10 MG, UNK
     Route: 048
     Dates: start: 20121101
  18. NABOAL [Concomitant]
     Dosage: 1 G, UNK
     Route: 061
     Dates: start: 20121115

REACTIONS (2)
  - Hepatic function abnormal [Recovered/Resolved]
  - Herpes zoster [Recovered/Resolved]
